FAERS Safety Report 6791386-1 (Version None)
Quarter: 2010Q2

REPORT INFORMATION
  Report Type: 
  Country: None (occurrence: None)
  Receive Date: 20100621
  Receipt Date: 20100618
  Transmission Date: 20101027
  Serious: Yes (Life-Threatening, Hospitalization)
  Sender: FDA-Public Use
  Company Number: WAES 1005USA03082

PATIENT
  Age: 76 Year
  Sex: Male

DRUGS (5)
  1. CAP VORINOSTAT [Suspect]
     Indication: MULTIPLE MYELOMA
     Dosage: 400 MG/ DAILY
     Route: 048
     Dates: start: 20100405, end: 20100411
  2. ARTIST [Concomitant]
  3. HYPOCA [Concomitant]
  4. MEVALOTIN [Concomitant]
  5. NU-LOTAN [Concomitant]

REACTIONS (16)
  - APPETITE DISORDER [None]
  - ASTHENIA [None]
  - BLOOD CREATINE PHOSPHOKINASE INCREASED [None]
  - DEPRESSED LEVEL OF CONSCIOUSNESS [None]
  - DISSEMINATED INTRAVASCULAR COAGULATION [None]
  - DYSARTHRIA [None]
  - FATIGUE [None]
  - GASTROINTESTINAL TOXICITY [None]
  - LYMPHOPENIA [None]
  - OSTEOPOROSIS [None]
  - PLEURAL EFFUSION [None]
  - PYELONEPHRITIS [None]
  - PYREXIA [None]
  - SEPSIS [None]
  - SOMNOLENCE [None]
  - THROMBOCYTOPENIA [None]
